FAERS Safety Report 10244146 (Version 1)
Quarter: 2014Q2

REPORT INFORMATION
  Report Type: Spontaneous
  Country: US (occurrence: None)
  Receive Date: 20140616
  Receipt Date: 20140616
  Transmission Date: 20141212
  Serious: Yes (Other)
  Sender: FDA-Public Use
  Company Number: None

PATIENT
  Age: 62 Year
  Sex: Male

DRUGS (2)
  1. IMBRUVICA [Suspect]
     Indication: ANAEMIA
     Dosage: 140 MG - TAKE 3 DAILY  DAILY ORAL
     Route: 048
     Dates: start: 20140215
  2. IMBRUVICA [Suspect]
     Indication: NEUTROPENIA
     Dosage: 140 MG - TAKE 3 DAILY  DAILY ORAL
     Route: 048
     Dates: start: 20140215

REACTIONS (1)
  - Atrial fibrillation [None]
